FAERS Safety Report 23275841 (Version 2)
Quarter: 2023Q4

REPORT INFORMATION
  Report Type: Spontaneous
  Country: CN (occurrence: CN)
  Receive Date: 20231208
  Receipt Date: 20231222
  Transmission Date: 20240109
  Serious: Yes (Life-Threatening)
  Sender: FDA-Public Use
  Company Number: CN-NEBO-PC012712

PATIENT
  Age: 53 Year
  Sex: Male
  Weight: 53 kg

DRUGS (1)
  1. IRON ISOMALTOSIDE 1000 [Suspect]
     Active Substance: IRON ISOMALTOSIDE 1000
     Indication: Iron deficiency anaemia
     Route: 050
     Dates: start: 20231128, end: 20231128

REACTIONS (2)
  - Seizure [Recovered/Resolved]
  - Glassy eyes [Recovered/Resolved]

NARRATIVE: CASE EVENT DATE: 20231128
